FAERS Safety Report 5040728-6 (Version None)
Quarter: 2006Q3

REPORT INFORMATION
  Report Type: 
  Country: None (occurrence: None)
  Receive Date: 20060703
  Receipt Date: 20060518
  Transmission Date: 20061208
  Serious: Yes (Death, Other)
  Sender: FDA-Public Use
  Company Number: PHBS2006JP07419

PATIENT
  Age: 64 Year
  Sex: Male
  Weight: 52 kg

DRUGS (4)
  1. PRIMPERAN TAB [Concomitant]
     Indication: VOMITING
     Route: 042
     Dates: start: 20060306, end: 20060306
  2. VOLTAREN [Suspect]
     Indication: POSTOPERATIVE ANALGESIA
     Dosage: 25 MG, TID
     Route: 054
     Dates: start: 20060306, end: 20060307
  3. SEVOFLURANE [Suspect]
     Route: 065
  4. SEDAPAIN [Concomitant]
     Indication: POSTOPERATIVE ANALGESIA
     Dosage: 15 MG/DAY
     Route: 030
     Dates: start: 20060306, end: 20060306

REACTIONS (31)
  - ACUTE RESPIRATORY DISTRESS SYNDROME [None]
  - ALANINE AMINOTRANSFERASE INCREASED [None]
  - ASPARTATE AMINOTRANSFERASE INCREASED [None]
  - BLOOD ALKALINE PHOSPHATASE ABNORMAL [None]
  - BLOOD BILIRUBIN INCREASED [None]
  - BLOOD CREATININE INCREASED [None]
  - BLOOD GLUCOSE INCREASED [None]
  - BLOOD POTASSIUM INCREASED [None]
  - BLOOD PRESSURE DECREASED [None]
  - BLOOD SODIUM DECREASED [None]
  - BLOOD UREA INCREASED [None]
  - CARDIAC FAILURE [None]
  - DEPRESSED LEVEL OF CONSCIOUSNESS [None]
  - DISSEMINATED INTRAVASCULAR COAGULATION [None]
  - ECHOCARDIOGRAM ABNORMAL [None]
  - FEELING ABNORMAL [None]
  - GAMMA-GLUTAMYLTRANSFERASE INCREASED [None]
  - GASTROINTESTINAL HAEMORRHAGE [None]
  - HAEMATOCRIT DECREASED [None]
  - HAEMOGLOBIN DECREASED [None]
  - HEART RATE INCREASED [None]
  - HEPATITIS FULMINANT [None]
  - JAUNDICE [None]
  - LARGE INTESTINE PERFORATION [None]
  - MULTI-ORGAN FAILURE [None]
  - PLATELET COUNT DECREASED [None]
  - RED BLOOD CELL COUNT DECREASED [None]
  - RENAL FAILURE [None]
  - RESPIRATORY RATE DECREASED [None]
  - SHOCK [None]
  - WHITE BLOOD CELL COUNT INCREASED [None]
